FAERS Safety Report 7899817-0 (Version None)
Quarter: 2011Q4

REPORT INFORMATION
  Report Type: 
  Country: None (occurrence: None)
  Receive Date: 20111107
  Receipt Date: 20110920
  Transmission Date: 20120403
  Serious: No
  Sender: FDA-Public Use
  Company Number: US-AMGEN-USASP2011045968

PATIENT
  Age: 12 Year
  Sex: Female
  Weight: 50.6 kg

DRUGS (3)
  1. VITAMIN C                          /00008001/ [Concomitant]
     Dosage: 1 TABLET DAILY
     Route: 048
  2. ENBREL [Suspect]
     Indication: JUVENILE ARTHRITIS
     Dosage: 50 MG, QWK
     Dates: start: 20050301
  3. MULTIVITAMIN                       /00097801/ [Concomitant]
     Dosage: 1 TABLET DAILY
     Route: 048

REACTIONS (4)
  - INJECTION SITE HAEMATOMA [None]
  - INJECTION SITE PAIN [None]
  - PHARYNGITIS [None]
  - INJECTION SITE REACTION [None]
